FAERS Safety Report 8315897-2 (Version None)
Quarter: 2012Q2

REPORT INFORMATION
  Report Type: 
  Country: None (occurrence: None)
  Receive Date: 20120427
  Receipt Date: 20120418
  Transmission Date: 20120825
  Serious: Yes (Hospitalization)
  Sender: FDA-Public Use
  Company Number: FR-ACCORD-013253

PATIENT
  Age: 72 Year
  Sex: Female

DRUGS (11)
  1. METFORMIN HCL [Concomitant]
  2. THIOCOLCHICOSIDE [Concomitant]
  3. GEMCITABINE [Suspect]
     Dosage: PERFUSION
     Route: 042
     Dates: start: 20120109
  4. DOMPERIDONE [Concomitant]
  5. ZOLPIDEM TARTRATE [Concomitant]
  6. ALPRAZOLAM [Concomitant]
  7. GLICLAZIDE [Concomitant]
  8. DESLORATADINE [Concomitant]
  9. TRAMADOL HCL [Concomitant]
  10. ZESTORETIC [Concomitant]
  11. RYTHMOL [Concomitant]

REACTIONS (3)
  - RASH ERYTHEMATOUS [None]
  - PALMAR-PLANTAR ERYTHRODYSAESTHESIA SYNDROME [None]
  - SKIN EXFOLIATION [None]
